FAERS Safety Report 20547004 (Version 2)
Quarter: 2022Q4

REPORT INFORMATION
  Report Type: Spontaneous
  Country: US (occurrence: US)
  Receive Date: 20220303
  Receipt Date: 20221122
  Transmission Date: 20230112
  Serious: Yes (Other)
  Sender: FDA-Public Use
  Company Number: US-PFIZER INC-202200300811

PATIENT
  Age: 65 Year
  Sex: Female

DRUGS (2)
  1. XELJANZ XR [Suspect]
     Active Substance: TOFACITINIB CITRATE
     Dosage: 11 MG
  2. ZINC [Concomitant]
     Active Substance: ZINC
     Indication: Immune system disorder
     Dosage: UNK

REACTIONS (2)
  - Upper limb fracture [Unknown]
  - Nasopharyngitis [Unknown]
